FAERS Safety Report 14884219 (Version 4)
Quarter: 2018Q3

REPORT INFORMATION
  Report Type: Spontaneous
  Country: US (occurrence: US)
  Receive Date: 20180511
  Receipt Date: 20180709
  Transmission Date: 20181010
  Serious: Yes (Hospitalization, Other)
  Sender: FDA-Public Use
  Company Number: US-TEVA-2018-US-890269

PATIENT
  Age: 42 Year
  Sex: Female
  Weight: 43 kg

DRUGS (7)
  1. FLAGYL [Concomitant]
     Active Substance: METRONIDAZOLE\METRONIDAZOLE HYDROCHLORIDE
     Indication: COLON CANCER
  2. ACTIQ [Suspect]
     Active Substance: FENTANYL CITRATE
     Indication: CANCER PAIN
     Route: 048
     Dates: start: 2000, end: 2009
  3. VITAMINS [Concomitant]
     Active Substance: VITAMINS
     Indication: SUPPLEMENTATION THERAPY
  4. ENSURE [Concomitant]
     Active Substance: AMINO ACIDS\DEXTROSE\ELECTROLYTES NOS\SOYBEAN OIL\VITAMINS
  5. PREDNISONE. [Concomitant]
     Active Substance: PREDNISONE
     Indication: INFLAMMATION
  6. NUCYNTA [Concomitant]
     Active Substance: TAPENTADOL HYDROCHLORIDE
  7. ACTIQ [Suspect]
     Active Substance: FENTANYL CITRATE
     Indication: RHEUMATOID ARTHRITIS
     Dates: start: 2000, end: 2009

REACTIONS (11)
  - Weight decreased [Unknown]
  - Renal disorder [Unknown]
  - Tooth loss [Unknown]
  - Mastication disorder [Not Recovered/Not Resolved]
  - Crohn^s disease [Not Recovered/Not Resolved]
  - Bone graft [Unknown]
  - Dental caries [Recovered/Resolved]
  - Off label use [Unknown]
  - Rheumatoid arthritis [Not Recovered/Not Resolved]
  - Apparent death [Recovered/Resolved]
  - Pain [Unknown]

NARRATIVE: CASE EVENT DATE: 200101
